FAERS Safety Report 8818576 (Version 1)
Quarter: 2012Q4

REPORT INFORMATION
  Report Type: 
  Country: DE (occurrence: DE)
  Receive Date: 20121001
  Receipt Date: 20121001
  Transmission Date: 20130627
  Serious: Yes (Other)
  Sender: FDA-Public Use
  Company Number: DE-PFIZER INC-2012241414

PATIENT
  Age: 37 Year
  Sex: Female

DRUGS (11)
  1. VENLAFAXINE HYDROCHLORIDE [Suspect]
     Indication: DEPRESSION
     Dosage: 75 mg, 1x/day since gestational week 27
     Route: 048
  2. VENLAFAXINE HYDROCHLORIDE [Suspect]
     Dosage: 350 mg, 1x/day (22-35 gestational week)
     Route: 048
  3. OLANZAPINE [Suspect]
     Indication: OBSESSIVE-COMPULSIVE DISORDER
     Dosage: 2.5 mg, 1x/day (from gestational week 27-35)
     Route: 048
  4. QUILONUM - SLOW RELEASE [Suspect]
     Indication: OBSESSIVE-COMPULSIVE DISORDER
     Dosage: 225 mg, 1x/day (gestational week 30)
     Route: 048
  5. QUILONUM - SLOW RELEASE [Suspect]
     Dosage: 450 mg, 1x/day (gestational week 31)
     Route: 048
  6. QUILONUM - SLOW RELEASE [Suspect]
     Dosage: 675 mg, 1x/day (gestational week 32)
     Route: 048
  7. QUILONUM - SLOW RELEASE [Suspect]
     Dosage: 900 mg, 1x/day (gestational week 33-35)
     Route: 048
  8. SERTRALINE [Concomitant]
     Indication: DEPRESSION
     Dosage: 50 mg, 1x/day (gestational week 18-20)
     Route: 048
  9. SERTRALINE [Concomitant]
     Indication: OBSESSIVE-COMPULSIVE DISORDER
     Dosage: 100 mg, 1x/day (gestational week 21-24)
     Route: 048
  10. SERTRALINE [Concomitant]
     Dosage: 150 mg, 1x/day (gestational week 25-27)
     Route: 048
  11. FOLASURE [Concomitant]
     Indication: PROPHYLAXIS OF NEURAL TUBE DEFECT
     Dosage: UNK
     Route: 048

REACTIONS (3)
  - Exposure during pregnancy [Unknown]
  - Foetal death [Recovered/Resolved]
  - Gastroenteritis norovirus [Unknown]
